FAERS Safety Report 13860427 (Version 1)
Quarter: 2017Q3

REPORT INFORMATION
  Report Type: Spontaneous
  Country: US (occurrence: US)
  Receive Date: 20170811
  Receipt Date: 20170811
  Transmission Date: 20171127
  Serious: No
  Sender: FDA-Public Use
  Company Number: US-AMGEN-USASP2017119131

PATIENT
  Age: 70 Year
  Sex: Male

DRUGS (6)
  1. ORENCIA [Concomitant]
     Active Substance: ABATACEPT
     Dosage: UNK
  2. REMICADE [Concomitant]
     Active Substance: INFLIXIMAB
     Dosage: UNK
  3. ACTEMRA [Concomitant]
     Active Substance: TOCILIZUMAB
     Dosage: UNK
  4. XELJANZ XR [Concomitant]
     Active Substance: TOFACITINIB CITRATE
     Dosage: 11 MG, QD
     Route: 048
  5. ENBREL [Suspect]
     Active Substance: ETANERCEPT
     Indication: RHEUMATOID ARTHRITIS
     Dosage: UNK
     Route: 065
  6. RITUXAN [Concomitant]
     Active Substance: RITUXIMAB
     Dosage: UNK

REACTIONS (1)
  - Drug ineffective [Unknown]
